FAERS Safety Report 5145431-X (Version None)
Quarter: 2006Q4

REPORT INFORMATION
  Report Type: 
  Country: None (occurrence: None)
  Receive Date: 20061101
  Receipt Date: 20061019
  Transmission Date: 20070319
  Serious: Yes (Death)
  Sender: FDA-Public Use
  Company Number: B0443885A

PATIENT
  Age: 16 Year
  Sex: Male

DRUGS (5)
  1. ALKERAN [Suspect]
     Indication: STEM CELL TRANSPLANT
     Dosage: 140 MG/M2/CYCLIC
  2. MYLERAN [Suspect]
     Indication: STEM CELL TRANSPLANT
     Dosage: CYCLIC / INTRAVENOUS
     Route: 042
  3. CYCLOPHOSPHAMIDE [Suspect]
     Indication: STEM CELL TRANSPLANT
     Dosage: 120 MG/KG/CYCLIC
  4. CAMPATH [Suspect]
     Indication: STEM CELL TRANSPLANT
  5. CLONAZEPAM [Concomitant]

REACTIONS (5)
  - GRAFT VERSUS HOST DISEASE [None]
  - MUCOSAL INFLAMMATION [None]
  - MULTI-ORGAN FAILURE [None]
  - SEPSIS [None]
  - VENOOCCLUSIVE DISEASE [None]
